FAERS Safety Report 23859881 (Version 1)
Quarter: 2024Q2

REPORT INFORMATION
  Report Type: Other
  Country: CN (occurrence: CN)
  Receive Date: 20240515
  Receipt Date: 20240515
  Transmission Date: 20240716
  Serious: Yes (Other)
  Sender: FDA-Public Use
  Company Number: CN-B.Braun Medical Inc.-2157047

PATIENT
  Age: 60 Year
  Sex: Female

DRUGS (7)
  1. NUTRILIPID I.V. FAT EMULSION [Suspect]
     Active Substance: SOYBEAN OIL
     Indication: Fluid replacement
  2. LEVODOPA [Concomitant]
     Active Substance: LEVODOPA
  3. SODIUM CHLORIDE [Concomitant]
     Active Substance: SODIUM CHLORIDE
  4. LEVOFLOXACIN [Concomitant]
     Active Substance: LEVOFLOXACIN
  5. Calcium tablests [Concomitant]
  6. ATORVASTATIN [Concomitant]
     Active Substance: ATORVASTATIN
  7. BENSERAZIDE [Concomitant]
     Active Substance: BENSERAZIDE

REACTIONS (1)
  - Thrombocytopenia [Recovered/Resolved]
